FAERS Safety Report 4518974-7 (Version None)
Quarter: 2004Q4

REPORT INFORMATION
  Report Type: 
  Country: None (occurrence: None)
  Receive Date: 20041201
  Receipt Date: 20041117
  Transmission Date: 20050328
  Serious: Yes (Hospitalization)
  Sender: FDA-Public Use
  Company Number: A-CH2004-06203

PATIENT
  Age: 73 Year
  Sex: Female
  Weight: 66 kg

DRUGS (6)
  1. TRACLEER [Suspect]
     Indication: PULMONARY HYPERTENSION
     Dosage: SEE IMAGE
     Route: 048
     Dates: start: 20040311, end: 20040401
  2. TRACLEER [Suspect]
     Indication: PULMONARY HYPERTENSION
     Dosage: SEE IMAGE
     Route: 048
     Dates: start: 20040401, end: 20040507
  3. TRACLEER [Suspect]
     Indication: PULMONARY HYPERTENSION
     Dosage: SEE IMAGE
     Route: 048
     Dates: start: 20040507, end: 20040527
  4. APROVEL (IRBESARTAN) [Concomitant]
  5. PREVISCAN (FLUINDIONE) [Concomitant]
  6. ALDACTAZINE (ALTIZIDE, SPIRONOLACTONE) [Concomitant]

REACTIONS (5)
  - ALPHA 1 FOETOPROTEIN INCREASED [None]
  - ESCHERICHIA SEPSIS [None]
  - HEPATIC NEOPLASM MALIGNANT NON-RESECTABLE [None]
  - PYELONEPHRITIS [None]
  - RESPIRATORY DISTRESS [None]
